FAERS Safety Report 7962115-0 (Version None)
Quarter: 2011Q4

REPORT INFORMATION
  Report Type: 
  Country: None (occurrence: None)
  Receive Date: 20111207
  Receipt Date: 20111123
  Transmission Date: 20120403
  Serious: Yes (Other)
  Sender: FDA-Public Use
  Company Number: FR-CELGENEUS-056-21880-11113498

PATIENT
  Sex: Male

DRUGS (2)
  1. REVLIMID [Suspect]
     Indication: MULTIPLE MYELOMA
     Dosage: 25 MILLIGRAM
     Route: 048
  2. REVLIMID [Suspect]
     Dosage: 10 MILLIGRAM
     Route: 048

REACTIONS (4)
  - ORTHOSTATIC HYPOTENSION [None]
  - THROMBOCYTOPENIA [None]
  - THROMBOCYTOPENIC PURPURA [None]
  - PAIN IN EXTREMITY [None]
